FAERS Safety Report 5119708-8 (Version None)
Quarter: 2006Q3

REPORT INFORMATION
  Report Type: 
  Country: None (occurrence: None)
  Receive Date: 20060929
  Receipt Date: 20060921
  Transmission Date: 20061208
  Serious: Yes (Other)
  Sender: FDA-Public Use
  Company Number: 14833

PATIENT
  Age: 50 Year
  Sex: Female

DRUGS (11)
  1. METHOTREXATE [Suspect]
     Indication: BURKITT'S LYMPHOMA
  2. METHOTREXATE [Suspect]
     Indication: CSF TEST ABNORMAL
  3. METHOTREXATE [Suspect]
     Indication: BURKITT'S LYMPHOMA
  4. METHOTREXATE [Suspect]
     Indication: CSF TEST ABNORMAL
  5. PIPERACILLIN AND TAZOBACTAM [Suspect]
     Indication: PSEUDOMONAS INFECTION
  6. IFOSFAMIDE [Concomitant]
  7. ETOPOSIDE [Concomitant]
  8. HIGH-DOSE CYTARABINE [Concomitant]
  9. CYCLOPHOSPHAMIDE [Concomitant]
  10. DOXORUBICIN [Concomitant]
  11. VINCRISTINE [Concomitant]

REACTIONS (4)
  - DRUG INTERACTION [None]
  - DRUG TOXICITY [None]
  - FEBRILE NEUTROPENIA [None]
  - LUNG INFECTION PSEUDOMONAL [None]
